FAERS Safety Report 9413466 (Version 1)
Quarter: 2013Q3

REPORT INFORMATION
  Report Type: Spontaneous
  Country: IT (occurrence: IT)
  Receive Date: 20130722
  Receipt Date: 20130722
  Transmission Date: 20140515
  Serious: Yes (Hospitalization)
  Sender: FDA-Public Use
  Company Number: IT-VERTEX PHARMACEUTICALS INC-2013-008153

PATIENT
  Age: 51 Year
  Sex: Male

DRUGS (4)
  1. INCIVO [Suspect]
     Indication: HEPATIC CIRRHOSIS
     Dosage: 2.25 G, QD, TABLET
     Route: 048
     Dates: start: 20130513, end: 20130619
  2. PEGASYS [Suspect]
     Indication: HEPATIC CIRRHOSIS
     Dosage: DOSAGE FORM: SOLUTION FOR INJECTION
     Route: 058
     Dates: start: 20130513, end: 20130619
  3. COPEGUS [Suspect]
     Indication: HEPATIC CIRRHOSIS
     Dosage: DOSAGE FORM: UNSPECIFIED
     Route: 048
     Dates: start: 20130513, end: 20130619
  4. ZEFIX [Concomitant]
     Indication: ANTIVIRAL PROPHYLAXIS
     Dates: start: 20090101, end: 20130715

REACTIONS (2)
  - Follicle centre lymphoma, follicular grade I, II, III recurrent [Not Recovered/Not Resolved]
  - Pancytopenia [Unknown]
